FAERS Safety Report 15662428 (Version 1)
Quarter: 2018Q4

REPORT INFORMATION
  Report Type: Spontaneous
  Country: FR (occurrence: FR)
  Receive Date: 20181127
  Receipt Date: 20181127
  Transmission Date: 20190205
  Serious: Yes (Other)
  Sender: FDA-Public Use
  Company Number: FR-MYLANLABS-2018M1087633

PATIENT
  Age: 56 Year
  Sex: Male

DRUGS (2)
  1. ESCITALOPRAM [Suspect]
     Active Substance: ESCITALOPRAM OXALATE
     Indication: PRODUCT USED FOR UNKNOWN INDICATION
     Dosage: UNK
  2. TERALITHE [Concomitant]
     Active Substance: LITHIUM CARBONATE
     Dosage: ADAPTED POSOLOGY: 2.5 TABLETS DAILY (LITHIUM 0.84 MMOL/L).

REACTIONS (4)
  - Speech disorder [Not Recovered/Not Resolved]
  - Renal failure [Unknown]
  - Dry mouth [Not Recovered/Not Resolved]
  - Tooth loss [Unknown]

NARRATIVE: CASE EVENT DATE: 20181004
